FAERS Safety Report 6746057 (Version 4)
Quarter: 2012Q4

REPORT INFORMATION
  Report Type: 
  Country: US (occurrence: US)
  Receive Date: 20080819
  Receipt Date: 20121107
  Transmission Date: 20130627
  Serious: Yes (Hospitalization, Other)
  Sender: FDA-Public Use
  Company Number: 2008BI016314

PATIENT
  Age: 45 Year
  Sex: Female

DRUGS (13)
  1. AVONEX [Suspect]
     Indication: MULTIPLE SCLEROSIS
     Route: 030
     Dates: start: 199902, end: 200308
  2. AVONEX [Suspect]
     Indication: MULTIPLE SCLEROSIS
     Route: 030
     Dates: start: 200308
  3. LISINOPRIL WITH HYDROCHOROTHIAZIDE [Concomitant]
     Indication: PRODUCT USED FOR UNKNOWN INDICATION
  4. SULAR [Concomitant]
     Indication: PRODUCT USED FOR UNKNOWN INDICATION
  5. IMDUR [Concomitant]
     Indication: PRODUCT USED FOR UNKNOWN INDICATION
  6. PROZAC [Concomitant]
     Indication: PRODUCT USED FOR UNKNOWN INDICATION
  7. OTC MEDICATIONS (NOS) [Concomitant]
     Indication: IRRITABLE BOWEL SYNDROME
  8. OXYBUTYNIN [Concomitant]
     Indication: MICTURITION URGENCY
  9. OXYBUTYNIN [Concomitant]
     Indication: URINARY INCONTINENCE
  10. REBIF [Concomitant]
     Indication: MULTIPLE SCLEROSIS
  11. A PILL (NOS) [Concomitant]
     Indication: MULTIPLE SCLEROSIS
  12. TYLENOL ARTHRITIS [Concomitant]
     Indication: PAIN IN EXTREMITY
  13. IBUPROFEN [Concomitant]
     Indication: PREMEDICATION

REACTIONS (26)
  - Uterine leiomyoma [Recovered/Resolved]
  - Non-cardiac chest pain [Recovered/Resolved]
  - Anaemia [Recovered/Resolved]
  - Menorrhagia [Recovered/Resolved]
  - Myocardial ischaemia [Unknown]
  - Hypertension [Unknown]
  - Diastolic dysfunction [Unknown]
  - Arteriosclerosis coronary artery [Unknown]
  - Fatigue [Unknown]
  - Nausea [Unknown]
  - Hyperhidrosis [Unknown]
  - Dyspnoea [Unknown]
  - Endometriosis [Recovered/Resolved]
  - Rectocele [Not Recovered/Not Resolved]
  - Back pain [Recovered/Resolved]
  - Irritable bowel syndrome [Recovered/Resolved]
  - Loss of consciousness [Recovered/Resolved]
  - Gastrointestinal obstruction [Unknown]
  - Abdominal discomfort [Recovered/Resolved]
  - Infection [Recovered/Resolved]
  - Muscle twitching [Not Recovered/Not Resolved]
  - Nuclear magnetic resonance imaging abnormal [Unknown]
  - Vomiting [Recovered/Resolved]
  - Multiple sclerosis relapse [Recovered/Resolved]
  - Syncope [Unknown]
  - Insomnia [Not Recovered/Not Resolved]
